FAERS Safety Report 19466435 (Version 1)
Quarter: 2021Q2

REPORT INFORMATION
  Report Type: Spontaneous
  Country: US (occurrence: US)
  Receive Date: 20210628
  Receipt Date: 20210628
  Transmission Date: 20210717
  Serious: No
  Sender: FDA-Public Use
  Company Number: US-ASTRAZENECA-2021A523571

PATIENT
  Sex: Male
  Weight: 118.8 kg

DRUGS (3)
  1. NEXIUM [Concomitant]
     Active Substance: ESOMEPRAZOLE MAGNESIUM
     Indication: GASTROOESOPHAGEAL REFLUX DISEASE
  2. INSULIN [Concomitant]
     Active Substance: INSULIN NOS
  3. BYDUREON BCISE [Suspect]
     Active Substance: EXENATIDE
     Route: 058
     Dates: start: 20210409

REACTIONS (4)
  - Weight decreased [Unknown]
  - Overweight [Unknown]
  - Decreased appetite [Unknown]
  - Eating disorder [Unknown]
